FAERS Safety Report 15402227 (Version 3)
Quarter: 2018Q4

REPORT INFORMATION
  Report Type: Report from Study
  Country: US (occurrence: US)
  Receive Date: 20180919
  Receipt Date: 20181015
  Transmission Date: 20190204
  Serious: Yes (Hospitalization)
  Sender: FDA-Public Use
  Company Number: US-TAKEDA-2018TUS027363

PATIENT
  Age: 71 Year
  Sex: Male

DRUGS (2)
  1. PONATINIB [Suspect]
     Active Substance: PONATINIB
     Indication: GASTROINTESTINAL STROMAL TUMOUR
     Dosage: 45 MG, QD
     Route: 048
     Dates: start: 20180828, end: 20180903
  2. PONATINIB [Suspect]
     Active Substance: PONATINIB
     Indication: METASTATIC NEOPLASM

REACTIONS (5)
  - Off label use [Unknown]
  - Pneumonia [Unknown]
  - Hypophagia [Unknown]
  - Blood bilirubin increased [Unknown]
  - Vomiting [Unknown]

NARRATIVE: CASE EVENT DATE: 20180828
